FAERS Safety Report 19273322 (Version 1)
Quarter: 2021Q2

REPORT INFORMATION
  Report Type: Report from Study
  Country: AU (occurrence: AU)
  Receive Date: 20210519
  Receipt Date: 20210519
  Transmission Date: 20210717
  Serious: Yes (Other)
  Sender: FDA-Public Use
  Company Number: AU-PFIZER INC-2021530798

PATIENT
  Age: 53 Year
  Sex: Male

DRUGS (7)
  1. PREDNISOLONE. [Interacting]
     Active Substance: PREDNISOLONE
     Dosage: UNK
  2. METOCLOPRAMIDE HCL [Interacting]
     Active Substance: METOCLOPRAMIDE HYDROCHLORIDE
     Dosage: UNK
  3. MORPHINE SULFATE. [Suspect]
     Active Substance: MORPHINE SULFATE
     Indication: ANALGESIC THERAPY
     Dosage: 330 MG, 1X/DAY; PUMP
  4. TEMAZEPAM. [Interacting]
     Active Substance: TEMAZEPAM
     Dosage: UNK
  5. NAPROXEN. [Interacting]
     Active Substance: NAPROXEN
     Dosage: UNK
  6. AMITRIPTYLINE [Interacting]
     Active Substance: AMITRIPTYLINE
     Dosage: UNK
  7. THIETHYLPERAZINE [Interacting]
     Active Substance: THIETHYLPERAZINE
     Dosage: UNK

REACTIONS (2)
  - Myoclonus [Unknown]
  - Drug interaction [Unknown]
